FAERS Safety Report 26203032 (Version 1)
Quarter: 2025Q4

REPORT INFORMATION
  Report Type: Spontaneous
  Country: EU (occurrence: EU)
  Receive Date: 20251226
  Receipt Date: 20251226
  Transmission Date: 20260117
  Serious: Yes (Hospitalization, Other)
  Sender: TEVA
  Company Number: EU-TEVA-VS-3401265

PATIENT
  Sex: Male

DRUGS (1)
  1. COPAXONE [Suspect]
     Active Substance: GLATIRAMER ACETATE
     Indication: Product used for unknown indication
     Route: 065
     Dates: end: 20251203

REACTIONS (12)
  - Anaphylactic reaction [Recovered/Resolved]
  - Cough [Unknown]
  - Swollen tongue [Unknown]
  - Lip swelling [Unknown]
  - Dyspnoea [Unknown]
  - Dyspnoea [Unknown]
  - Mouth swelling [Unknown]
  - Swelling of eyelid [Unknown]
  - Shock [Unknown]
  - Hyperventilation [Unknown]
  - Hypotension [Unknown]
  - Tachycardia [Unknown]
